FAERS Safety Report 4476559-5 (Version None)
Quarter: 2004Q4

REPORT INFORMATION
  Report Type: 
  Country: None (occurrence: None)
  Receive Date: 20041012
  Receipt Date: 20041001
  Transmission Date: 20050328
  Serious: Yes (Death, Other)
  Sender: FDA-Public Use
  Company Number: 163-20785-04100157

PATIENT

DRUGS (2)
  1. THALOMID [Suspect]
     Indication: NON-SMALL CELL LUNG CANCER
     Dosage: 400 MG/D PO D 15-28 (CYCLE 1); 400 MG/D PO QHS (CYCLE 2+), ORAL
     Route: 048
  2. CPT-11 (IRINOTECAN) (UNKNOWN) [Suspect]
     Indication: NON-SMALL CELL LUNG CANCER
     Dosage: 350 MG/M2 IV OVER 90 MIN D 1-22 (CYCLE 1); 350 MG/M2 IV OVER 90 MIN D 1 EVERY 21 DAYS, INTRAVENOUS
     Route: 042
     Dates: start: 20031030

REACTIONS (6)
  - CONFUSIONAL STATE [None]
  - FATIGUE [None]
  - GRANULOCYTE COUNT DECREASED [None]
  - HAEMOGLOBIN DECREASED [None]
  - NEUTROPHIL COUNT DECREASED [None]
  - RESPIRATORY ARREST [None]
